FAERS Safety Report 12547264 (Version 1)
Quarter: 2016Q3

REPORT INFORMATION
  Report Type: Spontaneous
  Country: None (occurrence: US)
  Receive Date: 20160711
  Receipt Date: 20160711
  Transmission Date: 20161109
  Serious: No
  Sender: FDA-Public Use
  Company Number: US-EGALET US INC-US-2015EGA000606

PATIENT

DRUGS (1)
  1. SPRIX [Suspect]
     Active Substance: KETOROLAC TROMETHAMINE
     Indication: MIGRAINE
     Dosage: UNK

REACTIONS (5)
  - Somnolence [Unknown]
  - Feeling of relaxation [Unknown]
  - Hypoaesthesia [Unknown]
  - Unevaluable event [Unknown]
  - Drug ineffective [Unknown]
